FAERS Safety Report 4897861-9 (Version None)
Quarter: 2006Q1

REPORT INFORMATION
  Report Type: 
  Country: None (occurrence: None)
  Receive Date: 20060201
  Receipt Date: 20060119
  Transmission Date: 20060701
  Serious: Yes (Hospitalization)
  Sender: FDA-Public Use
  Company Number: FR-GLAXOSMITHKLINE-B0407282A

PATIENT
  Age: 74 Year
  Sex: Female
  Weight: 62 kg

DRUGS (8)
  1. DEROXAT [Suspect]
     Dosage: 20MG PER DAY
     Route: 048
     Dates: start: 20040201, end: 20050606
  2. DI-HYDAN [Suspect]
     Dosage: 300MG PER DAY
     Route: 048
     Dates: start: 20030101
  3. GARDENAL [Suspect]
     Dosage: 200MG PER DAY
     Route: 048
     Dates: start: 20030101
  4. LEVOTHYROX [Concomitant]
     Route: 048
  5. PLAVIX [Concomitant]
     Route: 048
  6. OGAST [Concomitant]
     Route: 048
  7. DEDROGYL [Concomitant]
     Route: 048
  8. DEPAMIDE [Concomitant]
     Route: 048

REACTIONS (11)
  - BALANCE DISORDER [None]
  - CEREBELLAR SYNDROME [None]
  - DISORIENTATION [None]
  - DISTURBANCE IN ATTENTION [None]
  - EPILEPSY [None]
  - FALL [None]
  - HYPONATRAEMIA [None]
  - ILL-DEFINED DISORDER [None]
  - MALAISE [None]
  - MEDICATION ERROR [None]
  - SOMNOLENCE [None]
